FAERS Safety Report 10766971 (Version 1)
Quarter: 2015Q1

REPORT INFORMATION
  Report Type: Spontaneous
  Country: IL (occurrence: IL)
  Receive Date: 20150205
  Receipt Date: 20150205
  Transmission Date: 20150721
  Serious: Yes (Death, Other)
  Sender: FDA-Public Use
  Company Number: IL-TAKEDA-2015JNJ000040

PATIENT

DRUGS (6)
  1. DEXAMETHASONE. [Suspect]
     Active Substance: DEXAMETHASONE
     Indication: PLASMA CELL MYELOMA
  2. VELCADE [Suspect]
     Active Substance: BORTEZOMIB
     Indication: PLASMA CELL MYELOMA
     Route: 065
  3. THALIDOMIDE [Suspect]
     Active Substance: THALIDOMIDE
     Indication: PLASMA CELL MYELOMA
  4. DOXORUBICIN [Suspect]
     Active Substance: DOXORUBICIN
     Indication: PLASMA CELL MYELOMA
  5. CISPLATIN. [Suspect]
     Active Substance: CISPLATIN
     Indication: PLASMA CELL MYELOMA
  6. ETOPOSIDE. [Suspect]
     Active Substance: ETOPOSIDE
     Indication: PLASMA CELL MYELOMA

REACTIONS (13)
  - Multi-organ failure [Fatal]
  - Neuropathy peripheral [Unknown]
  - Arrhythmia [Fatal]
  - Renal failure [Unknown]
  - Febrile neutropenia [Unknown]
  - Drug hypersensitivity [Unknown]
  - Intestinal perforation [Fatal]
  - Neutropenia [Unknown]
  - Disease progression [Unknown]
  - Venous thrombosis [Unknown]
  - Sepsis [Fatal]
  - Thrombocytopenia [Unknown]
  - Drug ineffective [Unknown]
